FAERS Safety Report 18432607 (Version 1)
Quarter: 2020Q4

REPORT INFORMATION
  Report Type: Spontaneous
  Country: GB (occurrence: GB)
  Receive Date: 20201027
  Receipt Date: 20201027
  Transmission Date: 20210114
  Serious: Yes (Death, Life-Threatening, Hospitalization, Disabling, Congenital Anomaly, Other)
  Sender: FDA-Public Use
  Company Number: GB-TEVA-2020-GB-1841378

PATIENT
  Age: 28 Year
  Sex: Female
  Weight: 75 kg

DRUGS (4)
  1. SERTRALINE [Suspect]
     Active Substance: SERTRALINE HYDROCHLORIDE
     Dosage: 150 MG
     Route: 048
     Dates: start: 20200917, end: 20200917
  2. ALCOHOL. [Concomitant]
     Active Substance: ALCOHOL
  3. CLONAZEPAM. [Concomitant]
     Active Substance: CLONAZEPAM
  4. QUETIAPINE. [Suspect]
     Active Substance: QUETIAPINE
     Dosage: 600 MG
     Route: 048
     Dates: start: 20200917, end: 20200917

REACTIONS (10)
  - Ocular hyperaemia [Fatal]
  - Abnormal behaviour [Fatal]
  - Thinking abnormal [Fatal]
  - Vomiting [Fatal]
  - Headache [Fatal]
  - Cough [Fatal]
  - Eye pain [Fatal]
  - Rash [Fatal]
  - Loss of consciousness [Fatal]
  - Death [Fatal]

NARRATIVE: CASE EVENT DATE: 20200917
